FAERS Safety Report 7751032 (Version 4)
Quarter: 2014Q1

REPORT INFORMATION
  Report Type: Report from Study
  Country: JP (occurrence: JP)
  Receive Date: 20110106
  Receipt Date: 20140219
  Transmission Date: 20141002
  Serious: Yes (Other)
  Sender: FDA-Public Use
  Company Number: PHHY2010JP88977

PATIENT
  Age: 63 Year
  Sex: Male

DRUGS (3)
  1. AMN107 [Suspect]
     Indication: CHRONIC MYELOID LEUKAEMIA
     Dosage: 400 MG, BID
     Route: 048
     Dates: start: 20100407, end: 20100510
  2. AMN107 [Suspect]
     Dosage: 400 MG, BID
     Route: 048
     Dates: start: 20100519
  3. BAYASPIRIN [Concomitant]
     Indication: PROPHYLAXIS
     Dosage: 100 MG
     Route: 048
     Dates: start: 20101214

REACTIONS (2)
  - Electrocardiogram QT prolonged [Recovered/Resolved]
  - Lipase increased [Recovered/Resolved]
